FAERS Safety Report 10199157 (Version 2)
Quarter: 2014Q2

REPORT INFORMATION
  Report Type: Spontaneous
  Country: JP (occurrence: JP)
  Receive Date: 20140527
  Receipt Date: 20140612
  Transmission Date: 20141212
  Serious: Yes (Life-Threatening, Hospitalization, Other)
  Sender: FDA-Public Use
  Company Number: JP-PFIZER INC-2014145076

PATIENT
  Age: 81 Year
  Sex: Male
  Weight: 55.1 kg

DRUGS (4)
  1. UNASYN-S [Suspect]
     Indication: PNEUMONIA
     Dosage: UNK
     Route: 042
     Dates: start: 20140219, end: 20140224
  2. MINOCYCLINE [Suspect]
     Indication: PNEUMONIA
     Dosage: UNK
     Route: 042
     Dates: start: 20140219, end: 20140224
  3. BAKUMONDOUTO [Concomitant]
     Indication: HEPATITIS C
     Dosage: 6 G, DAILY
     Route: 048
     Dates: end: 20140224
  4. HOCHUUEKKITOU [Concomitant]
     Indication: HEPATITIS C
     Dosage: 5 G, DAILY
     Route: 048
     Dates: end: 20140224

REACTIONS (2)
  - Lung disorder [Recovered/Resolved]
  - Drug ineffective [Unknown]
